FAERS Safety Report 16210170 (Version 3)
Quarter: 2019Q2

REPORT INFORMATION
  Report Type: Report from Study
  Country: None (occurrence: BR)
  Receive Date: 20190417
  Receipt Date: 20190430
  Transmission Date: 20190711
  Serious: Yes (Congenital Anomaly, Other)
  Sender: FDA-Public Use
  Company Number: BR-ABBVIE-19S-020-2745361-00

PATIENT
  Sex: Male

DRUGS (4)
  1. ISENTRESS [Suspect]
     Active Substance: RALTEGRAVIR POTASSIUM
     Indication: MATERNAL EXPOSURE TIMING UNSPECIFIED
     Route: 064
  2. RITONAVIR. [Suspect]
     Active Substance: RITONAVIR
     Indication: MATERNAL EXPOSURE TIMING UNSPECIFIED
     Route: 064
  3. ATAZANAVIR. [Suspect]
     Active Substance: ATAZANAVIR
     Indication: MATERNAL EXPOSURE TIMING UNSPECIFIED
     Route: 064
  4. LAMIVUDINE / TENOFOVIR DISOPROXIL FUMARATE [Suspect]
     Active Substance: LAMIVUDINE\TENOFOVIR DISOPROXIL FUMARATE
     Indication: MATERNAL EXPOSURE TIMING UNSPECIFIED
     Route: 064

REACTIONS (3)
  - Foetal exposure during pregnancy [Unknown]
  - Cryptorchism [Unknown]
  - Cardiac murmur [Unknown]
